FAERS Safety Report 5690377-1 (Version None)
Quarter: 2008Q1

REPORT INFORMATION
  Report Type: 
  Country: None (occurrence: None)
  Receive Date: 20080331
  Receipt Date: 20080331
  Transmission Date: 20080703
  Serious: Yes (Other)
  Sender: FDA-Public Use
  Company Number: None

PATIENT
  Sex: Female
  Weight: 24.9478 kg

DRUGS (1)
  1. SINGULAIR [Suspect]
     Indication: ASTHMA
     Dosage: .5 MIL DAILY
     Dates: start: 20040101, end: 20080327

REACTIONS (6)
  - ABNORMAL BEHAVIOUR [None]
  - ANGER [None]
  - MOOD ALTERED [None]
  - OPPOSITIONAL DEFIANT DISORDER [None]
  - SELF ESTEEM DECREASED [None]
  - SUICIDAL IDEATION [None]
